FAERS Safety Report 20759934 (Version 2)
Quarter: 2022Q2

REPORT INFORMATION
  Report Type: Spontaneous
  Country: US (occurrence: US)
  Receive Date: 20220427
  Receipt Date: 20220622
  Transmission Date: 20220721
  Serious: Yes (Other)
  Sender: FDA-Public Use
  Company Number: US-BAUSCH-BL-2022-010087

PATIENT
  Sex: Female

DRUGS (1)
  1. DIASTAT [Suspect]
     Active Substance: DIAZEPAM
     Indication: Seizure
     Route: 054

REACTIONS (2)
  - Therapeutic product effect incomplete [Unknown]
  - Somnolence [Not Recovered/Not Resolved]
